FAERS Safety Report 5150705-2 (Version None)
Quarter: 2006Q4

REPORT INFORMATION
  Report Type: 
  Country: None (occurrence: None)
  Receive Date: 20061110
  Receipt Date: 20061110
  Transmission Date: 20070319
  Serious: Yes (Other)
  Sender: FDA-Public Use
  Company Number: None

PATIENT
  Sex: Female
  Weight: 63.5036 kg

DRUGS (1)
  1. ACETAMINOPHEN [Suspect]
     Indication: HEADACHE
     Dates: start: 20061001, end: 20061107

REACTIONS (5)
  - ABDOMINAL PAIN LOWER [None]
  - GASTRIC ULCER [None]
  - LARGE INTESTINAL ULCER [None]
  - OESOPHAGEAL ULCER [None]
  - PYREXIA [None]
